FAERS Safety Report 24685209 (Version 1)
Quarter: 2024Q4

REPORT INFORMATION
  Report Type: Spontaneous
  Country: US (occurrence: None)
  Receive Date: 20241127
  Receipt Date: 20241127
  Transmission Date: 20250115
  Serious: Yes (Hospitalization)
  Sender: Public
  Company Number: None

PATIENT
  Age: 55 Year
  Sex: Male
  Weight: 126 kg

DRUGS (1)
  1. APIXABAN [Suspect]
     Active Substance: APIXABAN
     Indication: Deep vein thrombosis
     Dosage: FREQUENCY : TWICE A DAY;?
     Route: 048

REACTIONS (8)
  - Gastrointestinal haemorrhage [None]
  - Haematemesis [None]
  - Melaena [None]
  - Hepatic cirrhosis [None]
  - Splenomegaly [None]
  - Varices oesophageal [None]
  - Portal hypertensive gastropathy [None]
  - Polyp [None]

NARRATIVE: CASE EVENT DATE: 20240611
